FAERS Safety Report 21271220 (Version 1)
Quarter: 2022Q3

REPORT INFORMATION
  Report Type: Spontaneous
  Country: US (occurrence: None)
  Receive Date: 20220830
  Receipt Date: 20220830
  Transmission Date: 20221027
  Serious: No
  Sender: FDA-Public Use
  Company Number: None

PATIENT
  Sex: Male
  Weight: 112.04 kg

DRUGS (27)
  1. TEMOZOLOMIDE [Suspect]
     Active Substance: TEMOZOLOMIDE
     Indication: Metastases to central nervous system
     Dosage: OTHER FREQUENCY : DAYS 1-5;?
     Dates: start: 202208, end: 20220830
  2. BENZONATATE [Concomitant]
  3. BETAMETHASONE [Concomitant]
  4. CLOTRIMAZOLE [Concomitant]
  5. BRIMONIDINE [Concomitant]
  6. DILTIAZEM [Concomitant]
  7. EPINEPHRINE [Concomitant]
  8. FLONASE ALLERGY RELIEF [Concomitant]
  9. GLIMEPIRIDE [Concomitant]
  10. HUMALOG KWIKPEN [Concomitant]
  11. JARDIANCE [Concomitant]
  12. LATANOPROST [Concomitant]
  13. LEVOTHYROXINE [Concomitant]
  14. LISINOPRIL [Concomitant]
     Active Substance: LISINOPRIL
  15. METFORMIN [Concomitant]
  16. MULTIVITAMINS/FLUORIDE [Concomitant]
  17. MULTIVITAMINS/MINERALS [Concomitant]
  18. OPDIVO [Concomitant]
  19. PANTOPRAZOLE [Concomitant]
  20. PREDNISOLONE [Concomitant]
  21. RHOPRESSA [Concomitant]
  22. SIMVASTATIN [Concomitant]
  23. SODIUM CHLORIDE [Concomitant]
     Active Substance: SODIUM CHLORIDE
  24. SYMBICORT [Concomitant]
  25. TOUJEO SOLOSTAR [Concomitant]
  26. VALIUM [Concomitant]
     Active Substance: DIAZEPAM
  27. VICTOZA [Concomitant]

REACTIONS (1)
  - Hospice care [None]
